FAERS Safety Report 19492715 (Version 1)
Quarter: 2021Q3

REPORT INFORMATION
  Report Type: Spontaneous
  Country: MY (occurrence: MY)
  Receive Date: 20210705
  Receipt Date: 20210705
  Transmission Date: 20211014
  Serious: Yes (Other)
  Sender: FDA-Public Use
  Company Number: MY-ROCHE-2860403

PATIENT
  Age: 65 Year
  Sex: Female

DRUGS (1)
  1. COPEGUS [Suspect]
     Active Substance: RIBAVIRIN
     Indication: HEPATITIS C
     Dosage: 1 DAY
     Route: 048

REACTIONS (3)
  - Haemolytic anaemia [Recovering/Resolving]
  - Reticulocyte count increased [Recovering/Resolving]
  - Haemoglobin decreased [Recovering/Resolving]
